FAERS Safety Report 21154186 (Version 1)
Quarter: 2022Q3

REPORT INFORMATION
  Report Type: Spontaneous
  Country: US (occurrence: US)
  Receive Date: 20220801
  Receipt Date: 20220801
  Transmission Date: 20221026
  Serious: Yes (Other)
  Sender: FDA-Public Use
  Company Number: US-NOVOPROD-943213

PATIENT
  Age: 76 Year
  Sex: Female
  Weight: 69.85 kg

DRUGS (1)
  1. VAGIFEM [Suspect]
     Active Substance: ESTRADIOL
     Indication: Vaginal disorder
     Dosage: UNK
     Route: 067

REACTIONS (4)
  - Knee arthroplasty [Unknown]
  - Vaginal mesh removal surgery [Unknown]
  - Vaginal haemorrhage [Unknown]
  - Urinary tract infection [Unknown]

NARRATIVE: CASE EVENT DATE: 20220703
